APPROVED DRUG PRODUCT: PILOCARPINE HYDROCHLORIDE
Active Ingredient: PILOCARPINE HYDROCHLORIDE
Strength: 1.25%
Dosage Form/Route: SOLUTION/DROPS;OPHTHALMIC
Application: A217733 | Product #001 | TE Code: AB
Applicant: AMNEAL EU LTD
Approved: Apr 28, 2025 | RLD: No | RS: No | Type: RX